FAERS Safety Report 5731652-1 (Version None)
Quarter: 2008Q2

REPORT INFORMATION
  Report Type: 
  Country: None (occurrence: None)
  Receive Date: 20080508
  Receipt Date: 20080430
  Transmission Date: 20081010
  Serious: Yes (Hospitalization)
  Sender: FDA-Public Use
  Company Number: PHHY2008AU06895

PATIENT
  Age: 49 Year
  Sex: Male

DRUGS (1)
  1. CLOZARIL [Suspect]
     Indication: SCHIZOPHRENIA
     Dosage: 100MG
     Dates: start: 20080407, end: 20080429

REACTIONS (4)
  - BLOOD BILIRUBIN ABNORMAL [None]
  - PLATELET COUNT DECREASED [None]
  - SPLENOMEGALY [None]
  - TROPONIN INCREASED [None]
